FAERS Safety Report 11652358 (Version 1)
Quarter: 2015Q4

REPORT INFORMATION
  Report Type: Report from Study
  Country: JP (occurrence: JP)
  Receive Date: 20151022
  Receipt Date: 20151022
  Transmission Date: 20160304
  Serious: Yes (Other)
  Sender: FDA-Public Use
  Company Number: JP-PFIZER INC-2015264908

PATIENT
  Age: 69 Year
  Sex: Female
  Weight: 37.6 kg

DRUGS (3)
  1. ALEVIATIN [Concomitant]
     Active Substance: PHENYTOIN SODIUM
     Indication: EPILEPSY
     Dosage: 200 MG, DAILY
     Route: 048
     Dates: start: 20130425
  2. PHENOBAL [Concomitant]
     Active Substance: PHENOBARBITAL
     Dosage: 180 MG, DAILY
     Route: 048
  3. FOSPHENYTOIN SODIUM. [Suspect]
     Active Substance: FOSPHENYTOIN SODIUM
     Indication: STATUS EPILEPTICUS
     Dosage: 20 MG/KG (ADMINISTRATION RATE 50 MG/MIN)
     Dates: start: 20130424

REACTIONS (1)
  - Drug eruption [Recovered/Resolved]
